FAERS Safety Report 4616215-3 (Version None)
Quarter: 2005Q1

REPORT INFORMATION
  Report Type: 
  Country: None (occurrence: None)
  Receive Date: 20050321
  Receipt Date: 20050311
  Transmission Date: 20050727
  Serious: Yes (Hospitalization)
  Sender: FDA-Public Use
  Company Number: 2005US-00486

PATIENT
  Age: 48 Year
  Sex: Female

DRUGS (1)
  1. IBUPROFEN [Suspect]

REACTIONS (6)
  - DEPRESSED MOOD [None]
  - DRUG ABUSER [None]
  - HEADACHE [None]
  - HYPOKALAEMIA [None]
  - RENAL TUBULAR ACIDOSIS [None]
  - SOMNOLENCE [None]
